FAERS Safety Report 18205723 (Version 1)
Quarter: 2020Q3

REPORT INFORMATION
  Report Type: Report from Study
  Country: US (occurrence: US)
  Receive Date: 20200828
  Receipt Date: 20200828
  Transmission Date: 20201103
  Serious: No
  Sender: FDA-Public Use
  Company Number: NVSC2020US237126

PATIENT
  Weight: 62 kg

DRUGS (1)
  1. ILARIS [Suspect]
     Active Substance: CANAKINUMAB
     Indication: JUVENILE IDIOPATHIC ARTHRITIS
     Dosage: 80 MG, EVERY 28 DAYS
     Route: 058
     Dates: start: 20170320

REACTIONS (1)
  - Inappropriate schedule of product administration [Not Recovered/Not Resolved]
